FAERS Safety Report 7688005-9 (Version None)
Quarter: 2011Q3

REPORT INFORMATION
  Report Type: 
  Country: None (occurrence: None)
  Receive Date: 20110817
  Receipt Date: 20110812
  Transmission Date: 20111222
  Serious: Yes (Other)
  Sender: FDA-Public Use
  Company Number: US-PFIZER INC-2011177644

PATIENT
  Sex: Female
  Weight: 134.24 kg

DRUGS (4)
  1. ZOLOFT [Suspect]
     Dosage: UNK
     Route: 048
  2. ZOLOFT [Suspect]
     Indication: MAJOR DEPRESSION
     Dosage: 50 MG, 2X/DAY
     Route: 048
     Dates: start: 20010401, end: 20070101
  3. CELEXA [Concomitant]
     Indication: MAJOR DEPRESSION
     Dosage: UNK
  4. ZOLOFT [Suspect]
     Dosage: UNK

REACTIONS (2)
  - AMNESIA [None]
  - LIBIDO DECREASED [None]
